FAERS Safety Report 12145889 (Version 2)
Quarter: 2016Q1

REPORT INFORMATION
  Report Type: Spontaneous
  Country: ES (occurrence: ES)
  Receive Date: 20160304
  Receipt Date: 20160323
  Transmission Date: 20160526
  Serious: Yes (Death, Other)
  Sender: FDA-Public Use
  Company Number: ES-ACTELION-A-CH2016-132379

PATIENT
  Age: 83 Year
  Sex: Female

DRUGS (1)
  1. OPSUMIT [Suspect]
     Active Substance: MACITENTAN
     Indication: PULMONARY ARTERIAL HYPERTENSION
     Dosage: UNK
     Route: 048
     Dates: start: 20151030, end: 20151225

REACTIONS (3)
  - Pulmonary arterial hypertension [Fatal]
  - Sudden death [Fatal]
  - Gastric haemorrhage [Unknown]
